FAERS Safety Report 5898550-4 (Version None)
Quarter: 2008Q3

REPORT INFORMATION
  Report Type: 
  Country: None (occurrence: None)
  Receive Date: 20080925
  Receipt Date: 20080114
  Transmission Date: 20090109
  Serious: No
  Sender: FDA-Public Use
  Company Number: A0703896A

PATIENT
  Age: 29 Year
  Sex: Female

DRUGS (1)
  1. BUPROPION HYDROCHLORIDE [Suspect]
     Indication: MENTAL DISORDER
     Dosage: 300MGD PER DAY
     Route: 048

REACTIONS (2)
  - ADVERSE DRUG REACTION [None]
  - ILL-DEFINED DISORDER [None]
